FAERS Safety Report 25827554 (Version 2)
Quarter: 2025Q4

REPORT INFORMATION
  Report Type: Spontaneous
  Country: EU (occurrence: EU)
  Receive Date: 20250920
  Receipt Date: 20251106
  Transmission Date: 20260118
  Serious: Yes (Other)
  Sender: AMGEN
  Company Number: EU-AMGEN-SWESP2025187325

PATIENT
  Sex: Female

DRUGS (1)
  1. PROCYSBI [Suspect]
     Active Substance: CYSTEAMINE BITARTRATE
     Indication: Cystinosis
     Dosage: 11 DOSAGE FORM, BID
     Route: 048
     Dates: start: 2021

REACTIONS (3)
  - Endocarditis [Recovered/Resolved]
  - Renal disorder [Not Recovered/Not Resolved]
  - Complications of transplanted kidney [Not Recovered/Not Resolved]

NARRATIVE: CASE EVENT DATE: 20230101
